FAERS Safety Report 19327743 (Version 3)
Quarter: 2022Q3

REPORT INFORMATION
  Report Type: Other
  Country: US (occurrence: None)
  Receive Date: 20210528
  Receipt Date: 20220709
  Transmission Date: 20221027
  Serious: Yes (Death)
  Sender: FDA-Public Use
  Company Number: US-ROCHE-2838474

PATIENT
  Sex: Male

DRUGS (2)
  1. TECENTRIQ [Suspect]
     Active Substance: ATEZOLIZUMAB
     Indication: Bladder cancer
     Dosage: INFUSE 1200MG INTRAVENOUSLY EVERY 21 DAY(S)?VIAL
     Route: 041
  2. TECENTRIQ [Suspect]
     Active Substance: ATEZOLIZUMAB
     Indication: Malignant urinary tract neoplasm

REACTIONS (1)
  - Death [Fatal]
